FAERS Safety Report 12452650 (Version 2)
Quarter: 2016Q2

REPORT INFORMATION
  Report Type: Spontaneous
  Country: US (occurrence: US)
  Receive Date: 20160609
  Receipt Date: 20160624
  Transmission Date: 20160815
  Serious: Yes (Other)
  Sender: FDA-Public Use
  Company Number: US-SA-2016SA107963

PATIENT
  Sex: Male

DRUGS (1)
  1. PLAVIX [Suspect]
     Active Substance: CLOPIDOGREL BISULFATE
     Indication: MYOCARDIAL INFARCTION
     Route: 065
     Dates: start: 2007, end: 201510

REACTIONS (4)
  - Ventricular assist device insertion [Unknown]
  - Drug ineffective [Unknown]
  - Myocardial infarction [Unknown]
  - Loss of consciousness [Unknown]
